FAERS Safety Report 11684323 (Version 1)
Quarter: 2015Q4

REPORT INFORMATION
  Report Type: Spontaneous
  Country: BR (occurrence: BR)
  Receive Date: 20151029
  Receipt Date: 20151029
  Transmission Date: 20160304
  Serious: Yes (Other)
  Sender: FDA-Public Use
  Company Number: BR-ASTRAZENECA-2015SE87016

PATIENT
  Age: 44 Year
  Sex: Female

DRUGS (7)
  1. OMEPRAZOLE. [Suspect]
     Active Substance: OMEPRAZOLE
     Indication: GASTRIC DISORDER
     Route: 048
     Dates: start: 1998
  2. TENORETIC [Suspect]
     Active Substance: ATENOLOL\CHLORTHALIDONE
     Dosage: BOUGHT TENORETIC 100/25 MG IN ORDER TO SPLIT IN 1/2 TABLET AND 1/4 TABLET
     Route: 048
  3. SIMVASTATIN. [Concomitant]
     Active Substance: SIMVASTATIN
     Indication: BLOOD CHOLESTEROL ABNORMAL
  4. TENORETIC [Suspect]
     Active Substance: ATENOLOL\CHLORTHALIDONE
     Dosage: 50/12.5 MG, 1/2 TABLET AT LUNCH TIME AND 1/2 TABLET AT DINNER, TWO TIMES A DAY
     Route: 048
     Dates: start: 1995
  5. LORAX [Concomitant]
     Active Substance: LORAZEPAM
     Indication: ANXIETY
     Route: 048
  6. TENORETIC [Suspect]
     Active Substance: ATENOLOL\CHLORTHALIDONE
     Dosage: 50/12.5 MG,1 TABLET, EVERY MORNING
     Route: 048
     Dates: start: 1995
  7. METFORMIN [Suspect]
     Active Substance: METFORMIN HYDROCHLORIDE
     Route: 048
     Dates: start: 2007

REACTIONS (4)
  - Diabetes mellitus inadequate control [Unknown]
  - Off label use [Not Recovered/Not Resolved]
  - Medication error [Recovered/Resolved]
  - Intentional product misuse [Not Recovered/Not Resolved]

NARRATIVE: CASE EVENT DATE: 1995
